FAERS Safety Report 15892738 (Version 1)
Quarter: 2019Q1

REPORT INFORMATION
  Report Type: Report from Study
  Country: US (occurrence: US)
  Receive Date: 20190130
  Receipt Date: 20190130
  Transmission Date: 20190417
  Serious: No
  Sender: FDA-Public Use
  Company Number: US-EXELIXIS-CABO-18017232

PATIENT
  Age: 62 Year
  Sex: Female

DRUGS (3)
  1. CABOMETYX [Suspect]
     Active Substance: CABOZANTINIB S-MALATE
     Indication: ADENOCARCINOMA
  2. CABOMETYX [Suspect]
     Active Substance: CABOZANTINIB S-MALATE
     Indication: NON-SMALL CELL LUNG CANCER
     Dosage: 60 MG, QD
     Dates: start: 20181109
  3. PREDNISONE. [Suspect]
     Active Substance: PREDNISONE
     Indication: HAEMORRHAGE
     Dosage: UNK

REACTIONS (4)
  - Increased appetite [Unknown]
  - Off label use [Unknown]
  - Back pain [Unknown]
  - Anger [Unknown]

NARRATIVE: CASE EVENT DATE: 201811
